FAERS Safety Report 25646291 (Version 1)
Quarter: 2025Q3

REPORT INFORMATION
  Report Type: Spontaneous
  Country: CN (occurrence: CN)
  Receive Date: 20250805
  Receipt Date: 20250805
  Transmission Date: 20251020
  Serious: Yes (Other)
  Sender: PFIZER
  Company Number: CN-PFIZER INC-202500156106

PATIENT
  Age: 58 Year
  Sex: Male

DRUGS (2)
  1. LORBRENA [Suspect]
     Active Substance: LORLATINIB
     Indication: Lung neoplasm malignant
     Dosage: 100 MG, 1X/DAY
     Route: 048
     Dates: start: 2024
  2. LORBRENA [Suspect]
     Active Substance: LORLATINIB
     Dosage: GRINDED INTO POWDER AND MIXED WITH WATER
     Route: 048

REACTIONS (7)
  - Malignant neoplasm progression [Unknown]
  - Lung neoplasm malignant [Unknown]
  - Metastases to oesophagus [Unknown]
  - Dysphagia [Unknown]
  - Lipids increased [Unknown]
  - Condition aggravated [Unknown]
  - Wrong technique in product usage process [Unknown]
